FAERS Safety Report 10561623 (Version 2)
Quarter: 2014Q4

REPORT INFORMATION
  Report Type: Not Available
  Country: US (occurrence: US)
  Receive Date: 20141103
  Receipt Date: 20141111
  Transmission Date: 20150529
  Serious: Yes (Hospitalization)
  Sender: FDA-Public Use
  Company Number: US-ONYX-2014-2378

PATIENT
  Age: 45 Year
  Sex: Male

DRUGS (4)
  1. HYDROCODONE [Concomitant]
     Active Substance: HYDROCODONE
     Indication: PAIN
  2. NEULASTA [Concomitant]
     Active Substance: PEGFILGRASTIM
     Indication: PROPHYLAXIS
  3. KYPROLIS [Suspect]
     Active Substance: CARFILZOMIB
     Indication: T-CELL LYMPHOMA
  4. KYPROLIS [Suspect]
     Active Substance: CARFILZOMIB
     Indication: PLASMACYTOMA
     Route: 042
     Dates: start: 20140724, end: 20140814

REACTIONS (8)
  - Nausea [Unknown]
  - Cough [Unknown]
  - Arthralgia [Unknown]
  - Vomiting [Unknown]
  - Oedema genital [Unknown]
  - Infection [Unknown]
  - Pyrexia [Unknown]
  - Urinary tract infection [Unknown]

NARRATIVE: CASE EVENT DATE: 20140814
